FAERS Safety Report 5367533-5 (Version None)
Quarter: 2007Q2

REPORT INFORMATION
  Report Type: 
  Country: None (occurrence: None)
  Receive Date: 20070622
  Receipt Date: 20061212
  Transmission Date: 20071010
  Serious: No
  Sender: FDA-Public Use
  Company Number: US-ASTRAZENECA-2006UW27485

PATIENT
  Sex: Female
  Weight: 61.2 kg

DRUGS (3)
  1. PULMICORT [Suspect]
     Indication: ASTHMA
     Dosage: ONE PUFF TWICE A DAY
     Route: 055
  2. PULMICORT [Suspect]
     Dosage: TWO PUFFS TWICE A DAY
     Route: 055
  3. ALBUTEROL [Concomitant]

REACTIONS (2)
  - DRUG EXPOSURE DURING PREGNANCY [None]
  - DRUG INEFFECTIVE [None]
